FAERS Safety Report 5851543-5 (Version None)
Quarter: 2008Q3

REPORT INFORMATION
  Report Type: 
  Country: None (occurrence: None)
  Receive Date: 20080820
  Receipt Date: 20080811
  Transmission Date: 20090109
  Serious: Yes (Hospitalization, Other)
  Sender: FDA-Public Use
  Company Number: US-AMGEN-QUU295692

PATIENT
  Sex: Female
  Weight: 61.3 kg

DRUGS (3)
  1. ENBREL [Suspect]
     Indication: JUVENILE ARTHRITIS
     Route: 058
     Dates: start: 20000101
  2. SULFASALAZINE [Concomitant]
     Dates: start: 20071121, end: 20080611
  3. PREDNISONE TAB [Concomitant]
     Dates: start: 20070901, end: 20080611

REACTIONS (24)
  - ARTHRALGIA [None]
  - ARTHRITIS [None]
  - GASTROENTERITIS VIRAL [None]
  - GLOMERULONEPHRITIS [None]
  - HYPOVOLAEMIA [None]
  - JOINT SWELLING [None]
  - LYMPH NODES SCAN ABNORMAL [None]
  - LYMPHADENOPATHY [None]
  - LYMPHOEDEMA [None]
  - NASOPHARYNGITIS [None]
  - NEPHRITIS INTERSTITIAL [None]
  - OCULAR HYPERAEMIA [None]
  - OROPHARYNGEAL PAIN [None]
  - PLEURAL EFFUSION [None]
  - PULMONARY OEDEMA [None]
  - RASH ERYTHEMATOUS [None]
  - RENAL FAILURE ACUTE [None]
  - RENAL TUBULAR NECROSIS [None]
  - RHEUMATOID ARTHRITIS [None]
  - SEPSIS [None]
  - SERUM SICKNESS [None]
  - TACHYCARDIA [None]
  - VIRAL INFECTION [None]
  - VISION BLURRED [None]
